FAERS Safety Report 17459220 (Version 1)
Quarter: 2020Q1

REPORT INFORMATION
  Report Type: Spontaneous
  Country: US (occurrence: US)
  Receive Date: 20200211
  Receipt Date: 20200211
  Transmission Date: 20200409
  Serious: No
  Sender: FDA-Public Use
  Company Number: None

PATIENT
  Age: 65 Year
  Sex: Female
  Weight: 63.5 kg

DRUGS (1)
  1. PENTAZOCINE/NALOXONE 50MG/0.5MG [Suspect]
     Active Substance: NALOXONE\PENTAZOCINE
     Indication: DRUG THERAPY
     Dosage: ?          QUANTITY:16 DF DOSAGE FORM;?
     Route: 048

REACTIONS (19)
  - Hyperhidrosis [None]
  - Weight decreased [None]
  - Hypophagia [None]
  - Feeling abnormal [None]
  - Eating disorder [None]
  - Drug hypersensitivity [None]
  - Diarrhoea [None]
  - Coma [None]
  - Asthenia [None]
  - Cold sweat [None]
  - Bedridden [None]
  - Feeling hot [None]
  - Vomiting [None]
  - Ill-defined disorder [None]
  - Dizziness [None]
  - Drug ineffective [None]
  - Vertigo [None]
  - Balance disorder [None]
  - Retching [None]
